FAERS Safety Report 4310635-2 (Version None)
Quarter: 2004Q1

REPORT INFORMATION
  Report Type: 
  Country: None (occurrence: None)
  Receive Date: 20040301
  Receipt Date: 20031031
  Transmission Date: 20041129
  Serious: No
  Sender: FDA-Public Use
  Company Number: WAES 0311USA00023

PATIENT
  Age: 65 Year
  Sex: Male

DRUGS (7)
  1. ZETIA [Suspect]
     Indication: BLOOD CHOLESTEROL INCREASED
     Dosage: 10 MG/DAILY/PO
     Route: 048
  2. DALMANE [Concomitant]
  3. LOPRESSOR [Concomitant]
  4. NEXIUM [Concomitant]
  5. PLAVIX [Concomitant]
  6. PRINIVIL [Concomitant]
  7. ZOCOR [Concomitant]

REACTIONS (3)
  - FACE OEDEMA [None]
  - RASH MORBILLIFORM [None]
  - RASH PAPULAR [None]
